FAERS Safety Report 7715626-7 (Version None)
Quarter: 2011Q3

REPORT INFORMATION
  Report Type: 
  Country: None (occurrence: None)
  Receive Date: 20110811
  Receipt Date: 20110518
  Transmission Date: 20111222
  Serious: Yes (Other)
  Sender: FDA-Public Use
  Company Number: AUR-APL-2011-01773

PATIENT
  Age: 51 Year
  Sex: Female
  Weight: 90.7 kg

DRUGS (6)
  1. LIPITOR [Suspect]
     Indication: BLOOD CHOLESTEROL ABNORMAL
     Dosage: 20 MG (20 MG, 1 IN 1 D), ORAL
     Route: 048
  2. GEODON [Suspect]
     Indication: BIPOLAR DISORDER
     Dates: start: 20060101
  3. CLONAZEPAM [Suspect]
     Indication: MENTAL DISORDER
     Dates: start: 20060101
  4. LASIX [Concomitant]
  5. DIVALPROEX SODIUM [Suspect]
     Indication: MENTAL DISORDER
     Dates: start: 19920101
  6. BENZTROPINE MESYLATE [Suspect]
     Indication: MENTAL DISORDER
     Dates: start: 20060101

REACTIONS (1)
  - WEIGHT INCREASED [None]
